FAERS Safety Report 8411911-4 (Version None)
Quarter: 2012Q2

REPORT INFORMATION
  Report Type: 
  Country: None (occurrence: None)
  Receive Date: 20120605
  Receipt Date: 20120529
  Transmission Date: 20120825
  Serious: Yes (Death, Hospitalization, Other)
  Sender: FDA-Public Use
  Company Number: US-CELGENEUS-163-50794-12022217

PATIENT
  Sex: Female
  Weight: 68.61 kg

DRUGS (11)
  1. GEMTUZUMAB [Suspect]
     Dosage: 3 MILLIGRAM/SQ. METER
     Route: 041
     Dates: start: 20111104, end: 20111111
  2. LIPITOR [Concomitant]
     Route: 065
  3. VIDAZA [Suspect]
     Dosage: 75 MILLIGRAM/SQ. METER
     Route: 041
     Dates: start: 20111004
  4. VIDAZA [Suspect]
     Dosage: 75 MILLIGRAM/SQ. METER
     Route: 041
     Dates: start: 20111104, end: 20111110
  5. LEVOTHYROXINE SODIUM [Concomitant]
     Route: 065
  6. PROCHLORPERAZINE [Concomitant]
     Dosage: 10 MILLIGRAM
     Route: 048
  7. DIPHENHYDRAMINE HYDROCHLORIDE [Concomitant]
     Route: 065
  8. GEMTUZUMAB [Suspect]
     Dosage: 3 MILLIGRAM/SQ. METER
     Route: 041
     Dates: start: 20111004
  9. VORINOSTAT [Suspect]
     Dosage: 400 MILLIGRAM
     Route: 048
     Dates: start: 20111104, end: 20111112
  10. VORINOSTAT [Suspect]
     Dosage: 400 MILLIGRAM
     Route: 048
     Dates: start: 20111004
  11. HYDROCODONE [Concomitant]
     Route: 065

REACTIONS (14)
  - SEPSIS [None]
  - FEBRILE NEUTROPENIA [None]
  - PLATELET COUNT DECREASED [None]
  - INJECTION SITE REACTION [None]
  - HYPOALBUMINAEMIA [None]
  - PLEURAL EFFUSION [None]
  - WHITE BLOOD CELL COUNT DECREASED [None]
  - NEUTROPHIL COUNT DECREASED [None]
  - VOMITING [None]
  - PYREXIA [None]
  - INFECTIOUS PERITONITIS [None]
  - CARDIAC FAILURE [None]
  - PNEUMONITIS [None]
  - DECREASED APPETITE [None]
